FAERS Safety Report 9604360 (Version 1)
Quarter: 2013Q4

REPORT INFORMATION
  Report Type: Report from Study
  Country: PL (occurrence: PL)
  Receive Date: 20131008
  Receipt Date: 20131008
  Transmission Date: 20140711
  Serious: Yes (Other)
  Sender: FDA-Public Use
  Company Number: PHHY2013PL110439

PATIENT
  Age: 31 Year
  Sex: Female

DRUGS (5)
  1. SIMULECT [Suspect]
     Indication: IMMUNOSUPPRESSION
  2. MYCOPHENOLIC ACID [Suspect]
     Indication: IMMUNOSUPPRESSION
  3. ADVAGRAF [Suspect]
     Indication: IMMUNOSUPPRESSION
  4. PROGRAF [Concomitant]
     Dosage: UNK
  5. PROGRAF [Concomitant]
     Dosage: DOSE REDUCED BY A HALF

REACTIONS (5)
  - Nephropathy toxic [Unknown]
  - Renal arteriosclerosis [Unknown]
  - Blood creatinine increased [Unknown]
  - Complications of transplanted kidney [Unknown]
  - Normochromic normocytic anaemia [Unknown]
